FAERS Safety Report 21780444 (Version 2)
Quarter: 2023Q1

REPORT INFORMATION
  Report Type: Spontaneous
  Country: DE (occurrence: DE)
  Receive Date: 20221227
  Receipt Date: 20230104
  Transmission Date: 20230417
  Serious: Yes (Hospitalization, Congenital Anomaly, Other)
  Sender: FDA-Public Use
  Company Number: DE-EMBRYOTOX-202207695

PATIENT
  Age: 40 Week
  Sex: Male
  Weight: 3.07 kg

DRUGS (2)
  1. LEVETIRACETAM [Suspect]
     Active Substance: LEVETIRACETAM
     Indication: Foetal exposure during pregnancy
     Dosage: UNK (MATERNAL DOSE: 200 MG, QD DATED 05 OCT 2020 TO 16 JUL 2021)
     Route: 064
  2. LEVETIRACETAM [Suspect]
     Active Substance: LEVETIRACETAM
     Dosage: UNK (UNK (MATERNAL DOSE: 300 MG, QD (DOSAGE INCREASED FROM WEEK 14+4 TO 300 MG DAILY))ATED 05 OCT 20
     Route: 064

REACTIONS (4)
  - Ventricular septal defect [Recovered/Resolved with Sequelae]
  - Atrial septal defect [Recovered/Resolved with Sequelae]
  - Small for dates baby [Unknown]
  - Foetal exposure during pregnancy [Unknown]
